FAERS Safety Report 8791587 (Version 1)
Quarter: 2012Q4

REPORT INFORMATION
  Report Type: 
  Country: US (occurrence: US)
  Receive Date: 20120918
  Receipt Date: 20120918
  Transmission Date: 20130627
  Serious: Yes (Hospitalization)
  Sender: FDA-Public Use
  Company Number: PHEH2012US017972

PATIENT
  Age: 51 None
  Sex: Female
  Weight: 142.86 kg

DRUGS (3)
  1. VOLTAREN [Suspect]
     Indication: ARTHRALGIA
     Dates: start: 20120627
  2. TRAMADOL [Suspect]
     Indication: ARTHRALGIA
     Dosage: 50 mg, every 4 to 6 hour
     Dates: start: 20120627
  3. SYNTHROID [Concomitant]
     Indication: THYROID DISORDER
     Dosage: 0.125 mg, daily

REACTIONS (3)
  - Arthritis [Unknown]
  - Drug intolerance [Unknown]
  - Drug ineffective [Unknown]
